FAERS Safety Report 5045112-7 (Version None)
Quarter: 2006Q3

REPORT INFORMATION
  Report Type: 
  Country: None (occurrence: None)
  Receive Date: 20060705
  Receipt Date: 20060619
  Transmission Date: 20061208
  Serious: Yes (Death, Hospitalization)
  Sender: FDA-Public Use
  Company Number: 8017476

PATIENT
  Age: 62 Year
  Sex: Female

DRUGS (5)
  1. KEPPRA [Suspect]
     Indication: CONVULSION
     Dosage: 500 MG 2/D PO
     Route: 048
     Dates: start: 20060601
  2. DEPAKOTE [Suspect]
     Indication: CONVULSION
     Dosage: 1500 MG PO
     Route: 048
     Dates: start: 20060101, end: 20060601
  3. DEPAKOTE [Suspect]
     Indication: CONVULSION
     Dosage: 1000 MG PO
     Route: 048
     Dates: start: 20060601, end: 20060601
  4. DEPACON [Suspect]
     Indication: CONVULSION
     Dosage: IV
     Route: 042
     Dates: start: 20060601
  5. LAMICTAL [Suspect]
     Indication: CONVULSION
     Dosage: PO
     Route: 048
     Dates: start: 20060101

REACTIONS (4)
  - CONVULSION [None]
  - ILL-DEFINED DISORDER [None]
  - PLATELET COUNT DECREASED [None]
  - STATUS EPILEPTICUS [None]
